FAERS Safety Report 5416777-2 (Version None)
Quarter: 2007Q3

REPORT INFORMATION
  Report Type: 
  Country: None (occurrence: None)
  Receive Date: 20070816
  Receipt Date: 20070806
  Transmission Date: 20080115
  Serious: Yes (Hospitalization)
  Sender: FDA-Public Use
  Company Number: JP-AMGEN-US221071

PATIENT
  Sex: Female
  Weight: 69 kg

DRUGS (11)
  1. ENBREL [Suspect]
     Indication: RHEUMATOID ARTHRITIS
     Route: 058
     Dates: start: 20050516, end: 20070411
  2. ARAVA [Suspect]
     Indication: RHEUMATOID ARTHRITIS
     Dosage: UNKNOWN
     Route: 048
     Dates: start: 20031015
  3. PREDONINE [Concomitant]
     Indication: RHEUMATOID ARTHRITIS
     Dosage: UNKNOWN
     Route: 048
  4. PRAVASTATIN [Concomitant]
     Dosage: UNKNOWN
     Route: 048
  5. ALFAROL [Concomitant]
     Dosage: UNKNOWN
     Route: 048
  6. SELTOUCH [Concomitant]
     Indication: RHEUMATOID ARTHRITIS
     Dosage: UNKNOWN
     Route: 061
  7. NORVASC [Concomitant]
     Dosage: UNKNOWN
     Route: 048
  8. BREDININ [Concomitant]
     Indication: RHEUMATOID ARTHRITIS
     Dosage: UNKNOWN
     Route: 048
     Dates: start: 20040526
  9. METHYCOBAL [Concomitant]
     Indication: RHEUMATOID ARTHRITIS
     Dosage: UNKNOWN
     Route: 048
  10. VOLTAREN [Concomitant]
     Indication: RHEUMATOID ARTHRITIS
     Dosage: UNKNOWN
     Route: 054
  11. MUCOSTA [Concomitant]
     Dosage: UNKNOWN
     Route: 048

REACTIONS (1)
  - BRONCHOPULMONARY ASPERGILLOSIS [None]
